FAERS Safety Report 7910672-2 (Version None)
Quarter: 2011Q4

REPORT INFORMATION
  Report Type: 
  Country: None (occurrence: None)
  Receive Date: 20111111
  Receipt Date: 20111107
  Transmission Date: 20120403
  Serious: Yes (Life-Threatening)
  Sender: FDA-Public Use
  Company Number: JP-ASTRAZENECA-2011SE61724

PATIENT
  Age: 27 Year
  Sex: Female
  Weight: 41 kg

DRUGS (5)
  1. NORGESTREL AND ETHINYL ESTRADIOL [Concomitant]
     Indication: ASTHMA
     Route: 048
  2. PRANLUKAST [Concomitant]
     Indication: ASTHMA
     Dosage: NUMBER OF SEPARATE DOSAGES UNKNOWN
     Route: 048
  3. TERSIGAN [Concomitant]
     Indication: ASTHMA
     Route: 055
  4. NEXIUM [Suspect]
     Indication: GASTRITIS
     Route: 048
     Dates: start: 20111008, end: 20111008
  5. ASMANEX TWISTHALER [Concomitant]
     Indication: ASTHMA
     Dosage: DOSE UNKNOWN
     Route: 055

REACTIONS (2)
  - SUICIDE ATTEMPT [None]
  - RESTLESSNESS [None]
